FAERS Safety Report 22075221 (Version 1)
Quarter: 2023Q1

REPORT INFORMATION
  Report Type: Spontaneous
  Country: US (occurrence: None)
  Receive Date: 20230307
  Receipt Date: 20230307
  Transmission Date: 20230418
  Serious: No
  Sender: FDA-Public Use
  Company Number: None

PATIENT

DRUGS (1)
  1. SEROQUEL [Suspect]
     Active Substance: QUETIAPINE FUMARATE

REACTIONS (4)
  - Drug ineffective [None]
  - Condition aggravated [None]
  - Dementia Alzheimer^s type [None]
  - Product prescribing issue [None]
